FAERS Safety Report 21044001 (Version 1)
Quarter: 2022Q3

REPORT INFORMATION
  Report Type: Spontaneous
  Country: US (occurrence: None)
  Receive Date: 20220702
  Receipt Date: 20220702
  Transmission Date: 20221026
  Serious: Yes (Disabling)
  Sender: FDA-Public Use
  Company Number: None

PATIENT
  Age: 21 Year
  Sex: Female
  Weight: 56.7 kg

DRUGS (10)
  1. PREGABALIN [Suspect]
     Active Substance: PREGABALIN
     Indication: Epilepsy
     Dosage: OTHER QUANTITY : 1 CAPSULE(S);?FREQUENCY : TWICE A DAY;?
     Route: 048
     Dates: start: 20201128, end: 20201219
  2. ACETAZOLAMIDE [Concomitant]
     Active Substance: ACETAZOLAMIDE
  3. CANNABIDIOL\HERBALS [Concomitant]
     Active Substance: CANNABIDIOL\HERBALS
  4. CURCUMIN [Concomitant]
     Active Substance: CURCUMIN
  5. VITAMIN D3 [Concomitant]
     Active Substance: CHOLECALCIFEROL
  6. JWH-018 [Concomitant]
     Active Substance: JWH-018
  7. ZINC [Concomitant]
     Active Substance: ZINC
  8. ZYRTEC [Concomitant]
     Active Substance: CETIRIZINE HYDROCHLORIDE
  9. medicinal cannabis [Concomitant]
  10. VITAMIN B12 [Concomitant]
     Active Substance: CYANOCOBALAMIN

REACTIONS (11)
  - Toxic encephalopathy [None]
  - Headache [None]
  - Palpitations [None]
  - Feeling drunk [None]
  - Depression [None]
  - Drug dependence [None]
  - Malaise [None]
  - Photosensitivity reaction [None]
  - Heart rate irregular [None]
  - Panic reaction [None]
  - Anxiety [None]

NARRATIVE: CASE EVENT DATE: 20201219
